FAERS Safety Report 22923273 (Version 7)
Quarter: 2024Q2

REPORT INFORMATION
  Report Type: Report from Study
  Country: AR (occurrence: AR)
  Receive Date: 20230908
  Receipt Date: 20240523
  Transmission Date: 20240715
  Serious: Yes (Other)
  Sender: FDA-Public Use
  Company Number: AR-ABBVIE-4773050

PATIENT
  Age: 41 Year
  Sex: Female
  Weight: 60 kg

DRUGS (21)
  1. UPADACITINIB [Suspect]
     Active Substance: UPADACITINIB
     Indication: Product used for unknown indication
     Dosage: DURATION TEXT: REASON FOR CHANGE OR STOP: ADVERSE EVENT
     Route: 048
     Dates: start: 20220505, end: 20230822
  2. UPADACITINIB [Suspect]
     Active Substance: UPADACITINIB
     Indication: Product used for unknown indication
     Route: 048
     Dates: start: 20220202, end: 20220428
  3. UPADACITINIB [Suspect]
     Active Substance: UPADACITINIB
     Indication: Product used for unknown indication
     Route: 048
     Dates: start: 20231024
  4. BCG VACCINE [Concomitant]
     Active Substance: BCG VACCINE
     Indication: Tuberculosis immunisation
  5. BETAMETHASONE SODIUM PHOSPHATE;DICLOFENAC POTASSIUM [Concomitant]
     Indication: Product used for unknown indication
     Dosage: DICLOFENAC POTASSIUM 75.00 MG, BETAMETHASONE SODIUM PHOSPHATE 2.63 M
     Route: 030
     Dates: start: 20220328, end: 20220330
  6. PREDNISONE [Concomitant]
     Active Substance: PREDNISONE
     Indication: Product used for unknown indication
     Dosage: FIRST ADMIN DATE : 2022
     Route: 058
     Dates: start: 2022, end: 20221004
  7. PREDNISONE [Concomitant]
     Active Substance: PREDNISONE
     Indication: Product used for unknown indication
     Route: 048
     Dates: start: 2019, end: 20220428
  8. PREDNISONE [Concomitant]
     Active Substance: PREDNISONE
     Indication: Product used for unknown indication
     Route: 048
     Dates: start: 20220505, end: 20220810
  9. NAPROXEN [Concomitant]
     Active Substance: NAPROXEN
     Indication: Product used for unknown indication
     Route: 048
     Dates: start: 2019, end: 20220428
  10. NAPROXEN [Concomitant]
     Active Substance: NAPROXEN
     Indication: Product used for unknown indication
     Route: 048
     Dates: start: 20220505, end: 20220930
  11. NAPROXEN [Concomitant]
     Active Substance: NAPROXEN
     Indication: Product used for unknown indication
     Dosage: TIME INTERVAL: AS NECESSARY: FREQUENCY TEXT: AS NEEDED
     Route: 048
     Dates: start: 20221001
  12. METHOTREXATE [Concomitant]
     Active Substance: METHOTREXATE
     Indication: Product used for unknown indication
     Dosage: FREQUENCY TEXT: WEEKLY?DURATION TEXT: STOPPED DUE TO PHYSICIAN DECISION
     Route: 058
     Dates: start: 2019, end: 20221004
  13. METHOTREXATE [Concomitant]
     Active Substance: METHOTREXATE
     Indication: Product used for unknown indication
     Route: 065
     Dates: start: 2006, end: 2019
  14. DIPHENHYDRAMINE [Concomitant]
     Active Substance: DIPHENHYDRAMINE
     Indication: Laryngitis
     Dosage: TIME INTERVAL: 0.33333333 DAYS: FREQUENCY TEXT: THREE TIMES DAILY
     Route: 048
     Dates: start: 20221022, end: 20221025
  15. INFLUENZA VIRUS VACCINE [Concomitant]
     Active Substance: INFLUENZA VIRUS VACCINE
     Indication: Product used for unknown indication
     Dosage: SEASONAL
     Route: 065
     Dates: start: 20220425
  16. BETAMETHASONE;DICLOFENAC [Concomitant]
     Indication: Chondritis
     Dosage: 1 TABLET
     Route: 048
     Dates: start: 20220428, end: 20220504
  17. ETINILESTRADIOL+LEVONORGESTREL [Concomitant]
     Indication: Prophylaxis
     Dosage: 1 TABLET
     Dates: start: 2013
  18. CYANOCOBALAMIN\FOLIC ACID\PYRIDOXINE HYDROCHLORIDE [Concomitant]
     Active Substance: CYANOCOBALAMIN\FOLIC ACID\PYRIDOXINE HYDROCHLORIDE
     Indication: Prophylaxis
     Dates: start: 2019, end: 20221004
  19. ALPRAZOLAM [Concomitant]
     Active Substance: ALPRAZOLAM
     Indication: Insomnia
     Dates: start: 2019
  20. PREDNISOLONE [Concomitant]
     Active Substance: PREDNISOLONE
     Indication: Product used for unknown indication
     Dosage: 2.5 MG
     Route: 048
     Dates: start: 20220811, end: 20220930
  21. PREDNISOLONE [Concomitant]
     Active Substance: PREDNISOLONE
     Indication: Product used for unknown indication
     Dosage: TIME INTERVAL: 0.33333333 WEEKS: 2.5 MG
     Route: 048
     Dates: start: 20221001, end: 20230530

REACTIONS (10)
  - Cervix carcinoma stage 0 [Recovered/Resolved]
  - Anaemia [Recovered/Resolved]
  - Heavy menstrual bleeding [Recovered/Resolved]
  - Musculoskeletal chest pain [Recovered/Resolved]
  - Papilloma viral infection [Recovered/Resolved]
  - Blood creatine phosphokinase increased [Unknown]
  - Blood creatinine increased [Unknown]
  - Cervical dysplasia [Recovering/Resolving]
  - C-reactive protein increased [Unknown]
  - White blood cell count abnormal [Unknown]

NARRATIVE: CASE EVENT DATE: 20230201
